FAERS Safety Report 4521019-6 (Version None)
Quarter: 2004Q4

REPORT INFORMATION
  Report Type: 
  Country: None (occurrence: None)
  Receive Date: 20041208
  Receipt Date: 20041129
  Transmission Date: 20050328
  Serious: Yes (Hospitalization)
  Sender: FDA-Public Use
  Company Number: 200419214US

PATIENT
  Sex: Male
  Weight: 79.1 kg

DRUGS (11)
  1. KETEK [Suspect]
     Indication: BRONCHITIS ACUTE
     Route: 048
     Dates: start: 20041123, end: 20041123
  2. COZAAR [Concomitant]
  3. ZOCOR [Concomitant]
  4. AMITRIPTYLINE HYDROCHLORIDE [Concomitant]
  5. TEMAZEPAM [Concomitant]
  6. METOPROLOL [Concomitant]
  7. PREVACID [Concomitant]
  8. ALBUTEROL SULFATE [Concomitant]
  9. METFORMIN HCL [Concomitant]
  10. PREDNISONE [Concomitant]
  11. NITROSTAT [Concomitant]

REACTIONS (3)
  - BACK PAIN [None]
  - DYSPNOEA [None]
  - INTESTINAL OBSTRUCTION [None]
